FAERS Safety Report 18188030 (Version 1)
Quarter: 2020Q3

REPORT INFORMATION
  Report Type: Spontaneous
  Country: DE (occurrence: DE)
  Receive Date: 20200824
  Receipt Date: 20200824
  Transmission Date: 20201103
  Serious: Yes (Hospitalization)
  Sender: FDA-Public Use
  Company Number: DE-TEVA-2020-DE-1816935

PATIENT
  Age: 86 Year
  Sex: Female

DRUGS (12)
  1. LEVOTHYROXIN?NATRIUM [Concomitant]
     Active Substance: LEVOTHYROXINE SODIUM
     Dosage: 125 MICROGRAM DAILY; 1?0?0?0
     Route: 048
  2. TORASEMID [Suspect]
     Active Substance: TORSEMIDE
     Dosage: 10 MG, DISCONTINUED
     Route: 048
     Dates: end: 20200602
  3. DEKRISTOL [Concomitant]
     Active Substance: CHOLECALCIFEROL
     Dosage: 20,000 IU / WEEK, SUNDAYS, CAPSULES
     Route: 048
  4. GINGIUM INTENS 120MG [Concomitant]
     Dosage: 120 MILLIGRAM DAILY; 1?0?0?0
     Route: 048
  5. METAMIZOL [Concomitant]
     Active Substance: METAMIZOLE SODIUM
     Dosage: 500 MG, IF NECESSARY, DROPS
     Route: 048
  6. EBRANTIL [Concomitant]
     Active Substance: URAPIDIL
     Dosage: 180 MILLIGRAM DAILY; 1?0?0?1
     Route: 048
  7. TOUJEO [Concomitant]
     Active Substance: INSULIN GLARGINE
     Dosage: 8 IU (INTERNATIONAL UNIT) DAILY; 0?1?0?0, AMPOULES
     Route: 058
  8. MICARDIS 80MG [Concomitant]
     Dosage: 80 MILLIGRAM DAILY; 1?0?0?0
     Route: 048
  9. ELIQUIS [Concomitant]
     Active Substance: APIXABAN
     Dosage: 5 MILLIGRAM DAILY;  1?0?1?0
     Route: 048
  10. PHYSIOTENS 0,2MG [Concomitant]
     Dosage: .6 MILLIGRAM DAILY;  1?0?1?1
     Route: 048
  11. VERAPAMIL [Concomitant]
     Active Substance: VERAPAMIL HYDROCHLORIDE
     Dosage: 240 MILLIGRAM DAILY; 1?0?1?0
     Route: 048
  12. SYMBICORT 160MIKROGRAMM/4,5MIKROGRAMM [Concomitant]
     Dosage: 2 DOSAGE FORMS DAILY; 160 | 4.5 MG, 1?0?1?0,
     Route: 055

REACTIONS (7)
  - Vomiting [Unknown]
  - Nausea [Unknown]
  - Dehydration [Unknown]
  - Condition aggravated [Unknown]
  - Constipation [Unknown]
  - General physical health deterioration [Unknown]
  - Fatigue [Unknown]
